FAERS Safety Report 4568409-3 (Version None)
Quarter: 2005Q1

REPORT INFORMATION
  Report Type: 
  Country: None (occurrence: None)
  Receive Date: 20050131
  Receipt Date: 20050117
  Transmission Date: 20050727
  Serious: Yes (Death)
  Sender: FDA-Public Use
  Company Number: HQWYE692019JAN05

PATIENT
  Age: 57 Year
  Sex: Male

DRUGS (1)
  1. RAPAMUNE [Suspect]
     Indication: RENAL TRANSPLANT
     Route: 048

REACTIONS (2)
  - CARDIAC DISORDER [None]
  - GASTROENTERITIS VIRAL [None]
